FAERS Safety Report 9089204 (Version 1)
Quarter: 2013Q1

REPORT INFORMATION
  Report Type: Spontaneous
  Country: JP (occurrence: JP)
  Receive Date: 20130201
  Receipt Date: 20130201
  Transmission Date: 20140127
  Serious: Yes (Hospitalization)
  Sender: FDA-Public Use
  Company Number: JP-PFIZER INC-2013024717

PATIENT
  Age: 62 Year
  Sex: Female

DRUGS (10)
  1. LYRICA [Suspect]
     Indication: PAIN IN EXTREMITY
     Dosage: 900 MG (12 CAPSULES OF LYRICA 75MG), SINGLE
     Route: 048
     Dates: start: 20130118, end: 20130118
  2. PLETAAL [Concomitant]
     Route: 048
  3. DIOVAN [Concomitant]
     Route: 048
  4. MOBIC [Concomitant]
     Route: 048
  5. SEIBULE [Concomitant]
     Route: 048
  6. KINEDAK [Concomitant]
     Route: 048
  7. ACTOS [Concomitant]
     Route: 048
  8. LENDORMIN [Concomitant]
     Route: 048
  9. HALCION [Concomitant]
     Route: 048
  10. FRANDOL [Concomitant]
     Route: 062

REACTIONS (3)
  - Spinal cord infarction [Unknown]
  - Overdose [Recovered/Resolved]
  - Somnolence [Recovered/Resolved]
